FAERS Safety Report 14082288 (Version 1)
Quarter: 2017Q4

REPORT INFORMATION
  Report Type: Other
  Country: ES (occurrence: ES)
  Receive Date: 20171013
  Receipt Date: 20171013
  Transmission Date: 20180321
  Serious: Yes (Other)
  Sender: FDA-Public Use
  Company Number: ES-HIKMA PHARMACEUTICALS CO. LTD-2017ES013773

PATIENT

DRUGS (1)
  1. INFLECTRA [Suspect]
     Active Substance: INFLIXIMAB-DYYB
     Indication: PSORIATIC ARTHROPATHY
     Dosage: UNK
     Route: 042
     Dates: start: 20160311

REACTIONS (1)
  - Intestinal ischaemia [Recovering/Resolving]

NARRATIVE: CASE EVENT DATE: 20170923
